FAERS Safety Report 24175073 (Version 3)
Quarter: 2025Q1

REPORT INFORMATION
  Report Type: Spontaneous
  Country: US (occurrence: US)
  Receive Date: 20240805
  Receipt Date: 20250105
  Transmission Date: 20250409
  Serious: No
  Sender: SANOFI AVENTIS
  Company Number: US-SA-SAC20240731000929

PATIENT
  Age: 66 Year
  Sex: Female
  Weight: 54.4 kg

DRUGS (22)
  1. REZUROCK [Suspect]
     Active Substance: BELUMOSUDIL
     Indication: Chronic graft versus host disease
     Dosage: 200 MG, BID
     Route: 048
     Dates: start: 2024
  2. PROTONIX [Concomitant]
     Active Substance: PANTOPRAZOLE SODIUM
  3. CALCIUM CARBONATE [Concomitant]
     Active Substance: CALCIUM CARBONATE
  4. FLUOXETINE [Concomitant]
     Active Substance: FLUOXETINE HYDROCHLORIDE
  5. CETIRIZINE [Concomitant]
     Active Substance: CETIRIZINE HYDROCHLORIDE
  6. DAPSONE [Concomitant]
     Active Substance: DAPSONE
  7. HYDROCORTISONE [Concomitant]
     Active Substance: HYDROCORTISONE
  8. MELOXICAM [Concomitant]
     Active Substance: MELOXICAM
  9. ATORVASTATIN [Concomitant]
     Active Substance: ATORVASTATIN
  10. LIVTENCITY [Concomitant]
     Active Substance: MARIBAVIR
  11. FLUTICASONE [Concomitant]
     Active Substance: FLUTICASONE
  12. TRIAMCINOLONE [Concomitant]
     Active Substance: TRIAMCINOLONE
  13. PROCHLORPERAZINE [Concomitant]
     Active Substance: PROCHLORPERAZINE
  14. PROCHLORPERAZINE [Concomitant]
     Active Substance: PROCHLORPERAZINE
  15. ACETAMINOPHEN [Concomitant]
     Active Substance: ACETAMINOPHEN
  16. LORATADINE [Concomitant]
     Active Substance: LORATADINE
  17. HYDROXYZINE [Concomitant]
     Active Substance: HYDROXYZINE HYDROCHLORIDE
  18. TRAMADOL [Concomitant]
     Active Substance: TRAMADOL
  19. ONDANSETRON [Concomitant]
     Active Substance: ONDANSETRON
  20. ONDANSETRON [Concomitant]
     Active Substance: ONDANSETRON
  21. ACYCLOVIR [Concomitant]
     Active Substance: ACYCLOVIR
  22. ACYCLOVIR [Concomitant]
     Active Substance: ACYCLOVIR

REACTIONS (6)
  - Hypersomnia [Unknown]
  - Photosensitivity reaction [Unknown]
  - Eye disorder [Unknown]
  - Pruritus [Unknown]
  - Muscular weakness [Unknown]
  - Fatigue [Unknown]

NARRATIVE: CASE EVENT DATE: 20240101
